FAERS Safety Report 8357647-X (Version None)
Quarter: 2012Q2

REPORT INFORMATION
  Report Type: 
  Country: None (occurrence: None)
  Receive Date: 20120514
  Receipt Date: 20120509
  Transmission Date: 20120825
  Serious: Yes (Hospitalization, Other)
  Sender: FDA-Public Use
  Company Number: US-BAYER-2012-046447

PATIENT
  Age: 64 Year
  Sex: Female
  Weight: 127.89 kg

DRUGS (2)
  1. METFORMIN HCL [Concomitant]
  2. NAPROXEN SODIUM [Suspect]
     Indication: ARTHRITIS
     Dosage: ONCE DAILY
     Route: 048

REACTIONS (2)
  - CONSTIPATION [None]
  - INTESTINAL OBSTRUCTION [None]
